FAERS Safety Report 10191594 (Version 1)
Quarter: 2014Q2

REPORT INFORMATION
  Report Type: Spontaneous
  Country: FR (occurrence: FR)
  Receive Date: 20140523
  Receipt Date: 20140523
  Transmission Date: 20141212
  Serious: Yes (Other)
  Sender: FDA-Public Use
  Company Number: FR-TEVA-482088ISR

PATIENT
  Age: 24 Year
  Sex: Female

DRUGS (1)
  1. LEELOO 0.1 MG/ 0.02 MG [Suspect]
     Indication: CONTRACEPTION
     Dosage: 1 TABLET DAILY;
     Route: 048
     Dates: start: 20130520, end: 201403

REACTIONS (4)
  - Malaise [Recovered/Resolved]
  - Paraesthesia [Recovered/Resolved]
  - Dysaesthesia [Recovered/Resolved]
  - Pain [Unknown]
